FAERS Safety Report 9227349 (Version 2)
Quarter: 2015Q3

REPORT INFORMATION
  Report Type: Spontaneous
  Country: US (occurrence: None)
  Receive Date: 20121012
  Receipt Date: 20150904
  Transmission Date: 20151125
  Serious: Yes (Other)
  Sender: FDA-Public Use
  Company Number: 1000026745

PATIENT
  Age: 49 Year
  Sex: Male

DRUGS (2)
  1. LEXAPRO [Suspect]
     Active Substance: ESCITALOPRAM OXALATE
     Indication: MAJOR DEPRESSION
     Dosage: 5 MG (5MG, 1 IN 1 D), ORAL
     Route: 048
     Dates: start: 20100519, end: 20111219
  2. LEXAPRO [Suspect]
     Active Substance: ESCITALOPRAM OXALATE
     Indication: MAJOR DEPRESSION
     Dosage: 2.5MG (2.5MG, 1 IN 1 D), ORAL
     Route: 048
     Dates: start: 20111220, end: 20120103

REACTIONS (2)
  - Diabetes mellitus [None]
  - Dysphagia [None]

NARRATIVE: CASE EVENT DATE: 201112
